FAERS Safety Report 8556400-1 (Version None)
Quarter: 2012Q3

REPORT INFORMATION
  Report Type: 
  Country: None (occurrence: None)
  Receive Date: 20120801
  Receipt Date: 20120727
  Transmission Date: 20120928
  Serious: Yes (Other)
  Sender: FDA-Public Use
  Company Number: PHHY2012BR065722

PATIENT
  Sex: Female

DRUGS (4)
  1. ASPIRIN [Concomitant]
     Dosage: UNK
  2. GLICLAZIDE [Concomitant]
     Dosage: UNK
  3. CILOSTAZOL [Concomitant]
     Dosage: UNK
  4. DIOVAN HCT [Suspect]
     Indication: HYPERTENSION
     Dosage: 1 TABLET DAILY

REACTIONS (4)
  - RENAL FAILURE [None]
  - HERNIA [None]
  - DIABETES MELLITUS [None]
  - BLOOD CHOLESTEROL INCREASED [None]
